FAERS Safety Report 4638700-0 (Version None)
Quarter: 2005Q2

REPORT INFORMATION
  Report Type: 
  Country: None (occurrence: None)
  Receive Date: 20050419
  Receipt Date: 20050411
  Transmission Date: 20051028
  Serious: Yes (Hospitalization)
  Sender: FDA-Public Use
  Company Number: US-BOEHRINGER INGELHEIM PHARMACEUTICALS, INC.-2005-BP-05970BP

PATIENT

DRUGS (1)
  1. SPIRIVA [Suspect]
     Route: 055

REACTIONS (1)
  - MYOCARDIAL INFARCTION [None]
